FAERS Safety Report 12207720 (Version 2)
Quarter: 2016Q2

REPORT INFORMATION
  Report Type: Spontaneous
  Country: CH (occurrence: PT)
  Receive Date: 20160324
  Receipt Date: 20160411
  Transmission Date: 20160815
  Serious: Yes (Other)
  Sender: FDA-Public Use
  Company Number: CH-LPDUSPRD-20160257

PATIENT
  Age: 82 Year
  Sex: Male

DRUGS (6)
  1. DIAMICRON LM [Concomitant]
     Active Substance: GLICLAZIDE
     Dosage: DOSE NOT PROVIDED
     Route: 048
  2. TROMALYT [Concomitant]
     Active Substance: ASPIRIN
     Dosage: DOSE NOT PROVIDED
     Route: 048
  3. VENOFER [Suspect]
     Active Substance: IRON SUCROSE
     Dosage: 400 MG IN 200 ML NS OVER 2 HRS
     Route: 041
     Dates: start: 20160219, end: 20160219
  4. METFORMIN [Concomitant]
     Active Substance: METFORMIN HYDROCHLORIDE
     Dosage: DOSE NOT PROVIDED
     Route: 048
  5. CONCUR [Concomitant]
     Dosage: DOSE NOT PROVIDED
     Route: 048
  6. INDAPAMIDE. [Concomitant]
     Active Substance: INDAPAMIDE
     Dosage: DOSE NOT PROVIDED
     Route: 048

REACTIONS (4)
  - Malaise [Unknown]
  - Syncope [Unknown]
  - Fatigue [Unknown]
  - Incorrect drug administration rate [Recovered/Resolved]

NARRATIVE: CASE EVENT DATE: 20160219
